FAERS Safety Report 9911656 (Version 1)
Quarter: 2014Q1

REPORT INFORMATION
  Report Type: Spontaneous
  Country: US (occurrence: US)
  Receive Date: 20140219
  Receipt Date: 20140219
  Transmission Date: 20141002
  Serious: Yes (Other)
  Sender: FDA-Public Use
  Company Number: PHEH2014US003081

PATIENT
  Sex: Female

DRUGS (6)
  1. TASIGNA [Suspect]
     Indication: LEUKAEMIA
     Dosage: 200 MG, BID
  2. EFEXOR XR [Concomitant]
     Dosage: 150 MG, QD
  3. TOPAMAX [Concomitant]
     Dosage: 50 MG, BID
  4. PROMETHAZINE [Concomitant]
     Dosage: 25 MG, PRN
  5. HYDROCODONE [Concomitant]
     Dosage: 7 MG, BID
  6. NEURONTIN [Concomitant]
     Dosage: 800 MG, BID

REACTIONS (2)
  - Neoplasm malignant [Unknown]
  - Abdominal pain upper [Unknown]
